FAERS Safety Report 20895942 (Version 2)
Quarter: 2022Q2

REPORT INFORMATION
  Report Type: Spontaneous
  Country: US (occurrence: US)
  Receive Date: 20220531
  Receipt Date: 20220621
  Transmission Date: 20220721
  Serious: No
  Sender: FDA-Public Use
  Company Number: US-PFIZER INC-202200748245

PATIENT
  Age: 33 Year
  Sex: Female
  Weight: 77.098 kg

DRUGS (11)
  1. PAXLOVID [Suspect]
     Active Substance: NIRMATRELVIR\RITONAVIR
     Indication: COVID-19 treatment
     Dosage: [PF-07321332 300 MG]/[RITONAVIR 100 MG]; 2X/DAY
     Dates: start: 20220518
  2. CEVIMELINE [Suspect]
     Active Substance: CEVIMELINE
     Indication: Dry mouth
     Dosage: 30 MG, 3X/DAY
     Dates: start: 2018
  3. CEVIMELINE [Suspect]
     Active Substance: CEVIMELINE
     Indication: Diabetes insipidus
  4. CEVIMELINE [Suspect]
     Active Substance: CEVIMELINE
     Indication: Autonomic nervous system imbalance
  5. EVOXAC [Suspect]
     Active Substance: CEVIMELINE HYDROCHLORIDE
     Indication: Dry mouth
     Dosage: 30 MG, 3X/DAY
     Dates: start: 2018
  6. EVOXAC [Suspect]
     Active Substance: CEVIMELINE HYDROCHLORIDE
     Indication: Diabetes insipidus
  7. EVOXAC [Suspect]
     Active Substance: CEVIMELINE HYDROCHLORIDE
     Indication: Autonomic nervous system imbalance
  8. MESTINON [Concomitant]
     Active Substance: PYRIDOSTIGMINE BROMIDE
     Dosage: UNK
     Dates: start: 2020
  9. METOPROLOL [Concomitant]
     Active Substance: METOPROLOL
     Dosage: UNK
     Dates: start: 202110
  10. LOPERAMIDE [Concomitant]
     Active Substance: LOPERAMIDE
     Dosage: UNK
     Dates: start: 202202
  11. NORTRIPTYLINE [Concomitant]
     Active Substance: NORTRIPTYLINE
     Dosage: UNK
     Dates: start: 2020

REACTIONS (6)
  - Dysgeusia [Recovered/Resolved]
  - Taste disorder [Recovered/Resolved]
  - Feeding disorder [Recovered/Resolved]
  - Vomiting [Recovered/Resolved]
  - Dyspepsia [Recovered/Resolved]
  - Salivary hypersecretion [Unknown]

NARRATIVE: CASE EVENT DATE: 20220518
